FAERS Safety Report 24334618 (Version 1)
Quarter: 2024Q3

REPORT INFORMATION
  Report Type: Spontaneous
  Country: US (occurrence: US)
  Receive Date: 20240918
  Receipt Date: 20240918
  Transmission Date: 20241016
  Serious: No
  Sender: SUNOVION
  Company Number: US-SMPA-2024SPA002655AA

PATIENT

DRUGS (3)
  1. GEMTESA [Suspect]
     Active Substance: VIBEGRON
     Indication: Hypertonic bladder
     Dosage: 75 MG, QD
     Route: 048
     Dates: start: 20240831, end: 20240903
  2. GEMTESA [Suspect]
     Active Substance: VIBEGRON
     Indication: Incontinence
  3. FLOMAX [Concomitant]
     Active Substance: TAMSULOSIN HYDROCHLORIDE
     Indication: Urinary incontinence
     Dosage: 0.4 MG, QD
     Route: 065

REACTIONS (7)
  - Malaise [Recovering/Resolving]
  - Pollakiuria [Unknown]
  - Weight decreased [Unknown]
  - Insomnia [Unknown]
  - Prostatic specific antigen increased [Unknown]
  - Diarrhoea [Unknown]
  - Dehydration [None]

NARRATIVE: CASE EVENT DATE: 20240902
